FAERS Safety Report 9606403 (Version 1)
Quarter: 2013Q4

REPORT INFORMATION
  Report Type: Spontaneous
  Country: US (occurrence: US)
  Receive Date: 20131008
  Receipt Date: 20131008
  Transmission Date: 20140711
  Serious: No
  Sender: FDA-Public Use
  Company Number: US-AMGEN-USASP2013052439

PATIENT
  Age: 84 Year
  Sex: Female

DRUGS (2)
  1. PROLIA [Suspect]
     Indication: OSTEOPOROSIS POSTMENOPAUSAL
     Dosage: UNK
     Route: 065
     Dates: start: 20130711
  2. EPOGEN [Suspect]
     Indication: ANAEMIA
     Route: 065

REACTIONS (6)
  - Stress [Unknown]
  - Haemoglobin decreased [Unknown]
  - Tooth loss [Unknown]
  - Gingivitis [Unknown]
  - Tooth disorder [Unknown]
  - Drug hypersensitivity [Unknown]
